FAERS Safety Report 22001663 (Version 1)
Quarter: 2023Q1

REPORT INFORMATION
  Report Type: Spontaneous
  Country: DE (occurrence: DE)
  Receive Date: 20230216
  Receipt Date: 20230216
  Transmission Date: 20230418
  Serious: Yes (Hospitalization, Other)
  Sender: FDA-Public Use
  Company Number: DE-009507513-2301DEU007782

PATIENT
  Age: 68 Year
  Sex: Female
  Weight: 100 kg

DRUGS (7)
  1. KEYTRUDA [Suspect]
     Active Substance: PEMBROLIZUMAB
     Indication: Triple negative breast cancer
     Dosage: 200 MG, EVERY 3 WEEKS
     Dates: start: 20220912, end: 20220919
  2. DEXAMETHASONE [Concomitant]
     Active Substance: DEXAMETHASONE
     Indication: Hypersensitivity
     Dosage: 8 MILLIGRAM
     Route: 042
     Dates: start: 20220912, end: 20220912
  3. DEXAMETHASONE [Concomitant]
     Active Substance: DEXAMETHASONE
     Indication: Vomiting
     Dosage: 4 MILLIGRAM
     Route: 048
     Dates: start: 20220912, end: 20220913
  4. CLEMASTINE [Concomitant]
     Active Substance: CLEMASTINE
     Indication: Hypersensitivity
     Dosage: 2 MILLIGRAM
     Route: 042
     Dates: start: 20220912, end: 20220912
  5. AKYNZEO (NETUPITANT\PALONOSETRON) [Concomitant]
     Active Substance: NETUPITANT\PALONOSETRON
     Indication: Vomiting
     Dosage: 300/0.5
     Dates: start: 20220912, end: 20220912
  6. PACLITAXEL [Concomitant]
     Active Substance: PACLITAXEL
     Indication: Triple negative breast cancer
     Dosage: EVERY 3 WEEKS
     Dates: start: 20221109
  7. CARBOPLATIN [Concomitant]
     Active Substance: CARBOPLATIN
     Indication: Triple negative breast cancer
     Dosage: EVERY 3 WEEKS
     Dates: start: 20221109

REACTIONS (3)
  - Enterocolitis haemorrhagic [Recovered/Resolved with Sequelae]
  - Acute kidney injury [Recovered/Resolved with Sequelae]
  - Urosepsis [Recovered/Resolved with Sequelae]

NARRATIVE: CASE EVENT DATE: 20220919
